FAERS Safety Report 9342401 (Version 1)
Quarter: 2013Q2

REPORT INFORMATION
  Report Type: Spontaneous
  Country: JP (occurrence: JP)
  Receive Date: 20130611
  Receipt Date: 20130611
  Transmission Date: 20140414
  Serious: Yes (Hospitalization, Other)
  Sender: FDA-Public Use
  Company Number: JP-CELGENEUS-087-21660-13053372

PATIENT
  Age: 63 Year
  Sex: Male
  Weight: 62 kg

DRUGS (24)
  1. ABRAXANE [Suspect]
     Indication: GASTRIC CANCER
     Dosage: 460 MILLIGRAM
     Route: 041
     Dates: start: 20130321, end: 20130321
  2. ABRAXANE [Suspect]
     Dosage: 370 MILLIGRAM
     Route: 041
     Dates: start: 20130411, end: 20130502
  3. RANMARK [Concomitant]
     Indication: METASTATIC GASTRIC CANCER
     Dosage: 120 MILLIGRAM
     Route: 065
     Dates: start: 20130307, end: 20130509
  4. RANMARK [Concomitant]
     Route: 065
     Dates: start: 20130509
  5. PROCESSED ACONITE ROOT [Concomitant]
     Indication: PRODUCT USED FOR UNKNOWN INDICATION
     Dosage: 1.5 GRAM
     Route: 048
     Dates: start: 20130502
  6. GASMOTIN [Concomitant]
     Indication: PRODUCT USED FOR UNKNOWN INDICATION
     Route: 048
     Dates: start: 20130116
  7. TAKEPRON [Concomitant]
     Indication: PRODUCT USED FOR UNKNOWN INDICATION
     Route: 048
     Dates: start: 20130207
  8. MEROPEN [Concomitant]
     Indication: PRODUCT USED FOR UNKNOWN INDICATION
     Dosage: 1 GRAM
     Dates: start: 20130508, end: 20130515
  9. OXYGEN [Concomitant]
     Indication: PRODUCT USED FOR UNKNOWN INDICATION
     Dosage: 96 LITERS
     Route: 065
  10. NEOPHYLLIN [Concomitant]
     Indication: PRODUCT USED FOR UNKNOWN INDICATION
     Dosage: 250 MILLIGRAM
     Route: 065
     Dates: start: 20130511, end: 20130519
  11. SOLU CORTEF [Concomitant]
     Indication: PRODUCT USED FOR UNKNOWN INDICATION
     Dosage: 200 MILLIGRAM
     Route: 065
     Dates: start: 20130511, end: 20130519
  12. GRAN [Concomitant]
     Indication: PRODUCT USED FOR UNKNOWN INDICATION
     Dosage: 75 MICROGRAM
     Route: 065
     Dates: start: 20130511
  13. RED BLOOD CELLS [Concomitant]
     Indication: FULL BLOOD COUNT DECREASED
     Dosage: 2 UNITS
     Route: 065
     Dates: start: 20130514
  14. BIOFERMIN [Concomitant]
     Indication: PRODUCT USED FOR UNKNOWN INDICATION
     Route: 048
     Dates: start: 20130207
  15. THEOLONG [Concomitant]
     Indication: PRODUCT USED FOR UNKNOWN INDICATION
     Route: 048
     Dates: start: 20130207
  16. CHAMPIX [Concomitant]
     Indication: PRODUCT USED FOR UNKNOWN INDICATION
     Route: 048
     Dates: start: 20130208, end: 20130508
  17. ALOXI [Concomitant]
     Indication: PRODUCT USED FOR UNKNOWN INDICATION
     Route: 041
  18. TRAMAL [Concomitant]
     Indication: PRODUCT USED FOR UNKNOWN INDICATION
     Route: 065
     Dates: start: 20130311, end: 20130425
  19. CYMBALTA [Concomitant]
     Indication: PRODUCT USED FOR UNKNOWN INDICATION
     Route: 048
     Dates: start: 20130415
  20. SANDOSTATIN [Concomitant]
     Indication: PRODUCT USED FOR UNKNOWN INDICATION
     Route: 065
     Dates: start: 20130426
  21. FENTOS [Concomitant]
     Indication: PRODUCT USED FOR UNKNOWN INDICATION
     Route: 065
     Dates: start: 20130426, end: 20130501
  22. OXYCONTIN [Concomitant]
     Indication: PRODUCT USED FOR UNKNOWN INDICATION
     Route: 048
     Dates: start: 20130502
  23. HYPERALIMENTATION [Concomitant]
     Indication: PRODUCT USED FOR UNKNOWN INDICATION
     Route: 041
     Dates: start: 20130511
  24. ENSURE [Concomitant]
     Indication: PRODUCT USED FOR UNKNOWN INDICATION
     Route: 048
     Dates: start: 20130516

REACTIONS (4)
  - Febrile neutropenia [Recovered/Resolved]
  - Diarrhoea [Recovered/Resolved]
  - Pneumonia aspiration [Recovering/Resolving]
  - Hypoaesthesia [Not Recovered/Not Resolved]
